FAERS Safety Report 22536455 (Version 1)
Quarter: 2023Q2

REPORT INFORMATION
  Report Type: Spontaneous
  Country: ES (occurrence: ES)
  Receive Date: 20230608
  Receipt Date: 20230608
  Transmission Date: 20230721
  Serious: Yes (Death)
  Sender: FDA-Public Use
  Company Number: ES-AMGEN-ESPSP2023097140

PATIENT

DRUGS (14)
  1. BEVACIZUMAB [Suspect]
     Active Substance: BEVACIZUMAB
     Indication: Vulval cancer
     Dosage: UNK
     Route: 065
  2. BEVACIZUMAB [Suspect]
     Active Substance: BEVACIZUMAB
     Indication: Vaginal cancer
  3. CISPLATIN [Concomitant]
     Active Substance: CISPLATIN
     Indication: Vulval cancer
     Dosage: UNK
     Route: 065
  4. CISPLATIN [Concomitant]
     Active Substance: CISPLATIN
     Indication: Vaginal cancer
  5. CETUXIMAB [Concomitant]
     Active Substance: CETUXIMAB
     Indication: Vaginal cancer
     Dosage: UNK
     Route: 065
  6. CETUXIMAB [Concomitant]
     Active Substance: CETUXIMAB
     Indication: Vulval cancer
  7. CARBOPLATIN [Concomitant]
     Active Substance: CARBOPLATIN
     Indication: Vulval cancer
     Dosage: UNK
     Route: 065
  8. CARBOPLATIN [Concomitant]
     Active Substance: CARBOPLATIN
     Indication: Vaginal cancer
  9. TAXOL [Concomitant]
     Active Substance: PACLITAXEL
     Indication: Vaginal cancer
     Dosage: UNK
     Route: 065
  10. TAXOL [Concomitant]
     Active Substance: PACLITAXEL
     Indication: Vulval cancer
  11. VINORELBINE [Concomitant]
     Active Substance: VINORELBINE TARTRATE
     Indication: Vulval cancer
     Dosage: UNK
     Route: 065
  12. VINORELBINE [Concomitant]
     Active Substance: VINORELBINE TARTRATE
     Indication: Vaginal cancer
  13. PEMBROLIZUMAB [Concomitant]
     Active Substance: PEMBROLIZUMAB
     Indication: Vaginal cancer
     Dosage: UNK
     Route: 065
  14. PEMBROLIZUMAB [Concomitant]
     Active Substance: PEMBROLIZUMAB
     Indication: Vulval cancer

REACTIONS (2)
  - Death [Fatal]
  - Off label use [Unknown]
